FAERS Safety Report 19854589 (Version 1)
Quarter: 2021Q3

REPORT INFORMATION
  Report Type: Report from Study
  Country: US (occurrence: US)
  Receive Date: 20210920
  Receipt Date: 20210920
  Transmission Date: 20211014
  Serious: Yes (Hospitalization)
  Sender: FDA-Public Use
  Company Number: US-BIOVITRUM-2021US8347

PATIENT
  Sex: Female
  Weight: 7 kg

DRUGS (8)
  1. SYNAGIS [Suspect]
     Active Substance: PALIVIZUMAB
     Indication: RETINOPATHY OF PREMATURITY
  2. SYNAGIS [Suspect]
     Active Substance: PALIVIZUMAB
     Indication: BRONCHOPULMONARY DYSPLASIA
  3. HYDROCORTISONE. [Concomitant]
     Active Substance: HYDROCORTISONE
  4. SYNAGIS [Suspect]
     Active Substance: PALIVIZUMAB
     Indication: DEPENDENCE ON OXYGEN THERAPY
  5. SYNAGIS [Suspect]
     Active Substance: PALIVIZUMAB
     Indication: PREMATURE BABY
  6. SYNAGIS [Suspect]
     Active Substance: PALIVIZUMAB
     Indication: ADRENAL INSUFFICIENCY
     Dosage: 100MG/1ML
     Route: 030
  7. POLY?VI?SOL WITH IRON [Concomitant]
     Active Substance: IRON\VITAMINS
  8. SYNAGIS [Suspect]
     Active Substance: PALIVIZUMAB
     Indication: LUNG DISORDER

REACTIONS (1)
  - Pyrexia [Unknown]
